FAERS Safety Report 6993253-7 (Version None)
Quarter: 2010Q3

REPORT INFORMATION
  Report Type: 
  Country: None (occurrence: None)
  Receive Date: 20100917
  Receipt Date: 20100129
  Transmission Date: 20110219
  Serious: No
  Sender: FDA-Public Use
  Company Number: US-ASTRAZENECA-2010SE04277

PATIENT
  Age: 254 Month
  Sex: Male
  Weight: 83.9 kg

DRUGS (6)
  1. SEROQUEL [Suspect]
     Indication: ASPERGER'S DISORDER
     Route: 048
     Dates: start: 20000928, end: 20060224
  2. SEROQUEL [Suspect]
     Indication: ATTENTION DEFICIT/HYPERACTIVITY DISORDER
     Route: 048
     Dates: start: 20000928, end: 20060224
  3. RISPERDAL [Concomitant]
     Indication: ATTENTION DEFICIT/HYPERACTIVITY DISORDER
     Dosage: UPTO 1 MG
     Dates: start: 19990101
  4. LITHIUM CARBONATE [Concomitant]
  5. DEPAKOTE [Concomitant]
  6. TOPAMAX [Concomitant]

REACTIONS (2)
  - NEPHROLITHIASIS [None]
  - TYPE 2 DIABETES MELLITUS [None]
